FAERS Safety Report 8031434-4 (Version None)
Quarter: 2011Q4

REPORT INFORMATION
  Report Type: 
  Country: None (occurrence: None)
  Receive Date: 20111201
  Receipt Date: 20110606
  Transmission Date: 20120403
  Serious: Yes (Other)
  Sender: FDA-Public Use
  Company Number: 284831USA

PATIENT
  Age: 39 Year
  Sex: Female

DRUGS (2)
  1. PHENTERMINE HYDROCHLORIDE [Suspect]
     Dates: start: 20110523
  2. ALPRAZOLAM [Concomitant]

REACTIONS (11)
  - MANIA [None]
  - OVERDOSE [None]
  - TRANSIENT ISCHAEMIC ATTACK [None]
  - DRUG ABUSE [None]
  - HYPERTENSION [None]
  - BIPOLAR DISORDER [None]
  - ARRHYTHMIA [None]
  - HALLUCINATION [None]
  - CARDIAC DISORDER [None]
  - HYPOTENSION [None]
  - MYOCARDIAL INFARCTION [None]
